FAERS Safety Report 10094225 (Version 1)
Quarter: 2014Q2

REPORT INFORMATION
  Report Type: Spontaneous
  Country: US (occurrence: US)
  Receive Date: 20140422
  Receipt Date: 20140422
  Transmission Date: 20141212
  Serious: Yes (Other)
  Sender: FDA-Public Use
  Company Number: US-SUN PHARMACEUTICAL INDUSTRIES LTD-2014SUN00822

PATIENT
  Age: 78 Year
  Sex: Male

DRUGS (6)
  1. CARVEDILOL 25 MG TABLET [Suspect]
     Indication: BLOOD PRESSURE
     Route: 065
  2. SPIRONOLACTONE TABLETS, USP 25 MG [Suspect]
     Indication: BLOOD PRESSURE
     Route: 065
  3. HYDROCHLOROTHIAZIDE 25 MG TABLETS [Suspect]
     Indication: BLOOD PRESSURE
     Route: 065
  4. ROSUVASTATIN [Suspect]
     Indication: PRODUCT USED FOR UNKNOWN INDICATION
     Dosage: 40 MG, QD
     Route: 065
  5. AMLODIPINE\BENAZEPRIL [Suspect]
     Indication: BLOOD PRESSURE
     Route: 065
  6. ALISKIREN [Suspect]
     Indication: BLOOD PRESSURE
     Dosage: 150 MG, QD
     Route: 065

REACTIONS (1)
  - Renal failure acute [Recovering/Resolving]
